FAERS Safety Report 22521329 (Version 1)
Quarter: 2023Q2

REPORT INFORMATION
  Report Type: Spontaneous
  Country: None (occurrence: US)
  Receive Date: 20230605
  Receipt Date: 20230605
  Transmission Date: 20230722
  Serious: Yes (Other)
  Sender: FDA-Public Use
  Company Number: US-B.Braun Medical Inc.-2142335

PATIENT
  Age: 24 Year
  Sex: Female

DRUGS (3)
  1. EPINEPHRINE\LIDOCAINE HYDROCHLORIDE [Suspect]
     Active Substance: EPINEPHRINE\LIDOCAINE HYDROCHLORIDE
     Indication: Epidural anaesthesia
  2. FENTANYL [Suspect]
     Active Substance: FENTANYL
  3. BUPIVACAINE [Suspect]
     Active Substance: BUPIVACAINE

REACTIONS (4)
  - Maternal exposure during pregnancy [Unknown]
  - Local anaesthetic systemic toxicity [Unknown]
  - Headache [Unknown]
  - Visual impairment [Unknown]
